FAERS Safety Report 13829353 (Version 1)
Quarter: 2017Q3

REPORT INFORMATION
  Report Type: Spontaneous
  Country: CA (occurrence: CA)
  Receive Date: 20170803
  Receipt Date: 20170803
  Transmission Date: 20171127
  Serious: Yes (Death)
  Sender: FDA-Public Use
  Company Number: CA-PFIZER INC-2017333858

PATIENT
  Age: 52 Year
  Sex: Female

DRUGS (12)
  1. HYDROMORPHONE [Concomitant]
     Active Substance: HYDROMORPHONE
     Dosage: 1 MG, ONCE EVERY 2 HOURS AS NEEDED
  2. APO-BISACODYL [Concomitant]
     Active Substance: BISACODYL
     Dosage: 5 MG, DAILY (8 TABS DAILY)
  3. FUROSEMIDE. [Concomitant]
     Active Substance: FUROSEMIDE
     Dosage: 20 MG (HALF OF 40 MG), DAILY
  4. METFORMIN [Concomitant]
     Active Substance: METFORMIN HYDROCHLORIDE
     Dosage: 500 MG, UNK
  5. METADOL /00068902/ [Concomitant]
     Dosage: 2.5 MG (HALF OF 5 MG), DAILY (AT BEDTIME)
  6. XARELTO [Concomitant]
     Active Substance: RIVAROXABAN
     Dosage: 20 MG, 2X/DAY
  7. IBRANCE [Suspect]
     Active Substance: PALBOCICLIB
     Dosage: 125 MG, CYCLIC, 1 TAB QD PO FOR 21 DAYS AND 7 DAYS OFF
     Route: 048
     Dates: start: 20161125
  8. HALOPERIDOL. [Concomitant]
     Active Substance: HALOPERIDOL
     Dosage: 0.5 MG (HALF OF 1 MG), 2X/DAY (EVERY 12 HOURS)
  9. HYDROMORPH CONTIN [Concomitant]
     Active Substance: HYDROMORPHONE
     Dosage: 3 MG (ONCE), 2X/DAY (EVERY 12 HOURS)
  10. VITAMIN D /00107901/ [Concomitant]
     Active Substance: ERGOCALCIFEROL
     Dosage: 1000 IU, DAILY
  11. PREGABALIN. [Concomitant]
     Active Substance: PREGABALIN
     Dosage: 50 MG, 3X/DAY
  12. ZOPICLONE [Concomitant]
     Active Substance: ZOPICLONE
     Dosage: 5 MG (ONCE), DAILY AT BEDTIME

REACTIONS (1)
  - Death [Fatal]
